FAERS Safety Report 9440656 (Version 1)
Quarter: 2013Q3

REPORT INFORMATION
  Report Type: Spontaneous
  Country: US (occurrence: US)
  Receive Date: 20130805
  Receipt Date: 20130805
  Transmission Date: 20140515
  Serious: Yes (Hospitalization)
  Sender: FDA-Public Use
  Company Number: US-PFIZER INC-2013225648

PATIENT
  Age: 65 Year
  Sex: Male

DRUGS (16)
  1. TIKOSYN [Suspect]
     Indication: ATRIAL FIBRILLATION
     Dosage: 500 UG, 2X/DAY
     Dates: start: 201010
  2. TIKOSYN [Suspect]
     Dosage: 500 UG, DAILY
  3. ASPIRIN [Concomitant]
     Dosage: 81 MG, DAILY
  4. ATORVASTATIN [Concomitant]
     Indication: BLOOD CHOLESTEROL ABNORMAL
     Dosage: 20 MG, DAILY
  5. DIGOXIN [Concomitant]
     Indication: CARDIAC DISORDER
     Dosage: 250 UG, DAILY
  6. FAMOTIDINE [Concomitant]
     Indication: ABDOMINAL DISCOMFORT
     Dosage: 20 MG, DAILY
  7. ISOSORBIDE MONONITRATE [Concomitant]
     Indication: CARDIAC DISORDER
     Dosage: 60 MG, DAILY
  8. LOSARTAN [Concomitant]
     Indication: HYPERTENSION
     Dosage: 100 MG, DAILY
  9. METOPROLOL SUCCINATE [Concomitant]
     Indication: CARDIAC DISORDER
     Dosage: 200 MG, DAILY
  10. OCUVITE [Concomitant]
     Indication: EYE DISORDER
     Dosage: UNK, DAILY
  11. OMEGA 3 FISH OIL [Concomitant]
     Dosage: 1000 MG, DAILY
  12. POTASSIUM CHLORIDE [Concomitant]
     Dosage: 20 MEQ, ALTERNATE DAY
  13. SITAGLIPTIN [Concomitant]
     Dosage: 100 MG, ALTERNATE DAY
  14. TORSEMIDE [Concomitant]
     Indication: DIURETIC THERAPY
     Dosage: 20 MG, ALTERNATE DAY
  15. VITAMIN D3 [Concomitant]
     Dosage: 2000 IU, DAILY
  16. WARFARIN [Concomitant]
     Indication: ATRIAL FIBRILLATION
     Dosage: 2.5 MG ON SATURDAY AND 5MG DAILY REST OF THE WEEK

REACTIONS (2)
  - Inappropriate schedule of drug administration [Unknown]
  - Atrial fibrillation [Unknown]
